FAERS Safety Report 25184456 (Version 2)
Quarter: 2025Q2

REPORT INFORMATION
  Report Type: Spontaneous
  Country: ES (occurrence: ES)
  Receive Date: 20250410
  Receipt Date: 20250425
  Transmission Date: 20250716
  Serious: Yes (Hospitalization)
  Sender: PFIZER
  Company Number: None

PATIENT
  Age: 61 Year
  Sex: Male

DRUGS (11)
  1. CYTARABINE [Suspect]
     Active Substance: CYTARABINE
     Indication: Non-Hodgkin^s lymphoma
     Route: 042
     Dates: start: 20131214, end: 20131214
  2. METHOTREXATE SODIUM [Suspect]
     Active Substance: METHOTREXATE SODIUM
     Indication: Non-Hodgkin^s lymphoma
     Route: 042
     Dates: start: 20131213, end: 20131213
  3. ACYCLOVIR [Concomitant]
     Active Substance: ACYCLOVIR
     Indication: Prophylaxis
     Dosage: 800MG/12H
     Route: 048
     Dates: start: 20131201
  4. CARMUSTINE [Concomitant]
     Active Substance: CARMUSTINE
     Indication: Non-Hodgkin^s lymphoma
     Route: 042
     Dates: start: 20131206, end: 20131206
  5. CARVEDILOL [Concomitant]
     Active Substance: CARVEDILOL
     Indication: Hypertension
     Dosage: 3.125 MG DE Y CE
     Route: 048
     Dates: start: 20131201
  6. FUROSEMIDE [Concomitant]
     Active Substance: FUROSEMIDE
     Dosage: 20MG/8H
     Route: 042
     Dates: start: 20131205
  7. HYDROCORTISONE [Concomitant]
     Active Substance: HYDROCORTISONE
     Indication: Non-Hodgkin^s lymphoma
     Route: 042
     Dates: start: 20131202
  8. ACETAMINOPHEN [Concomitant]
     Active Substance: ACETAMINOPHEN
     Indication: Pain
     Dosage: 1GR/12H
     Route: 042
     Dates: start: 20131202, end: 20131216
  9. RANITIDINE [Concomitant]
     Active Substance: RANITIDINE
     Indication: Prophylaxis
     Dosage: 1CP EN CENA
     Route: 048
     Dates: start: 20131201
  10. SIMVASTATIN [Concomitant]
     Active Substance: SIMVASTATIN
     Indication: Dyslipidaemia
     Dosage: 0-0-1
     Route: 048
     Dates: start: 20131201
  11. SULFAMETHOXAZOLE\TRIMETHOPRIM [Concomitant]
     Active Substance: SULFAMETHOXAZOLE\TRIMETHOPRIM
     Route: 048
     Dates: start: 20131201

REACTIONS (2)
  - Hepatitis cholestatic [Recovered/Resolved]
  - Toxic skin eruption [Recovered/Resolved]

NARRATIVE: CASE EVENT DATE: 20131218
